FAERS Safety Report 22889356 (Version 2)
Quarter: 2023Q4

REPORT INFORMATION
  Report Type: Spontaneous
  Country: JP (occurrence: JP)
  Receive Date: 20230831
  Receipt Date: 20231026
  Transmission Date: 20240109
  Serious: Yes (Hospitalization, Other)
  Sender: FDA-Public Use
  Company Number: JP-PFIZER INC-202300285323

PATIENT
  Age: 70 Year
  Sex: Female
  Weight: 46.7 kg

DRUGS (11)
  1. PAXLOVID [Suspect]
     Active Substance: NIRMATRELVIR\RITONAVIR
     Indication: COVID-19 treatment
     Dosage: [NIRMATRELVIR 300 MG]/[RITONAVIR 100 MG]; 2X/DAY
     Route: 048
     Dates: start: 20230725, end: 20230729
  2. CYCLOSPORINE [Suspect]
     Active Substance: CYCLOSPORINE
     Indication: Kidney transplant rejection
     Dosage: 50 MG, 2X/DAY
     Route: 048
     Dates: start: 20001203
  3. BELSOMRA [Suspect]
     Active Substance: SUVOREXANT
     Indication: Insomnia
     Dosage: 15 MG, 1X/DAY
     Route: 048
  4. CERTICAN [Suspect]
     Active Substance: EVEROLIMUS
     Indication: Kidney transplant rejection
     Dosage: 0.25 MG, 2X/DAY
     Route: 048
     Dates: start: 20001203
  5. MEDROL [Concomitant]
     Active Substance: METHYLPREDNISOLONE
     Indication: Kidney transplant rejection
     Dosage: 4 MG, 1X/DAY
     Route: 048
     Dates: start: 20001203
  6. .ALPHA.-TOCOPHEROL ACETATE [Concomitant]
     Active Substance: .ALPHA.-TOCOPHEROL ACETATE
     Dosage: 50 MG, 2X/DAY
     Route: 048
  7. GASLON [Concomitant]
     Active Substance: IRSOGLADINE MALEATE
     Dosage: 2 MG, 2X/DAY
     Route: 048
  8. ALFACALCIDOL [Concomitant]
     Active Substance: ALFACALCIDOL
     Dosage: 0.25 MG, 1X/DAY
     Route: 048
  9. ATORVASTATIN [Concomitant]
     Active Substance: ATORVASTATIN
     Dosage: 10 MG, 1X/DAY
     Route: 048
  10. ACTONEL [Concomitant]
     Active Substance: RISEDRONATE SODIUM
     Dosage: 17.5 MG, WEEKLY
     Route: 048
  11. ETIZOLAM [Concomitant]
     Active Substance: ETIZOLAM
     Dosage: 0.5 MG, 1X/DAY
     Route: 048

REACTIONS (10)
  - Renal disorder [Recovered/Resolved]
  - Decreased appetite [Recovering/Resolving]
  - Renal impairment [Unknown]
  - Gastrointestinal disorder [Unknown]
  - Drug level increased [Unknown]
  - Abdominal discomfort [Unknown]
  - Diarrhoea [Unknown]
  - Dehydration [Unknown]
  - Eating disorder [Unknown]
  - Contraindicated product administered [Unknown]

NARRATIVE: CASE EVENT DATE: 20230725
